FAERS Safety Report 7438806-7 (Version None)
Quarter: 2011Q2

REPORT INFORMATION
  Report Type: 
  Country: None (occurrence: None)
  Receive Date: 20110426
  Receipt Date: 20110412
  Transmission Date: 20111010
  Serious: Yes (Hospitalization)
  Sender: FDA-Public Use
  Company Number: US-WATSON-2011-05618

PATIENT
  Age: 33 Year
  Sex: Male

DRUGS (3)
  1. FLUOXETINE [Suspect]
     Indication: ADJUSTMENT DISORDER WITH DEPRESSED MOOD
     Dosage: 80 MG, DAILY
     Route: 048
  2. DIAZEPAM [Suspect]
     Indication: ADJUSTMENT DISORDER WITH DEPRESSED MOOD
     Dosage: UNK
     Route: 065
  3. SERTRALINE HYDROCHLORIDE [Suspect]
     Indication: ADJUSTMENT DISORDER WITH DEPRESSED MOOD
     Dosage: 100 MG, DAILY
     Route: 065

REACTIONS (1)
  - SEROTONIN SYNDROME [None]
